FAERS Safety Report 9013572 (Version 2)
Quarter: 2013Q1

REPORT INFORMATION
  Report Type: Spontaneous
  Country: BR (occurrence: BR)
  Receive Date: 20130115
  Receipt Date: 20130318
  Transmission Date: 20140127
  Serious: Yes (Other)
  Sender: FDA-Public Use
  Company Number: PHHY2013BR002968

PATIENT
  Sex: Male
  Weight: 45 kg

DRUGS (3)
  1. RITALIN LA [Suspect]
     Indication: ATTENTION DEFICIT/HYPERACTIVITY DISORDER
     Dosage: 1 DF, DAILY
     Route: 048
     Dates: start: 2011
  2. RITALIN LA [Suspect]
     Dosage: 80 MG, DAILY
     Route: 048
  3. CALMANERVIN [Concomitant]
     Indication: SLEEP DISORDER
     Dosage: 2 DF, UNK

REACTIONS (2)
  - Dyslexia [Recovering/Resolving]
  - Overdose [Unknown]
